FAERS Safety Report 14330935 (Version 2)
Quarter: 2018Q1

REPORT INFORMATION
  Report Type: Report from Study
  Country: US (occurrence: US)
  Receive Date: 20171228
  Receipt Date: 20180305
  Transmission Date: 20180509
  Serious: Yes (Hospitalization, Disabling, Other)
  Sender: FDA-Public Use
  Company Number: US-TEVA-2017-US-826257

PATIENT
  Sex: Female
  Weight: 79 kg

DRUGS (10)
  1. INCB018424 [Suspect]
     Active Substance: RUXOLITINIB
     Dosage: 180 MILLIGRAM DAILY;
     Route: 048
     Dates: start: 20170829
  2. VINCRISTINE [Suspect]
     Active Substance: VINCRISTINE
     Indication: ACUTE LYMPHOCYTIC LEUKAEMIA
     Dosage: 2MG, ON DAY 15,22,43,50
     Route: 042
     Dates: start: 20170503
  3. CYCLOPHOSPHAMIDE. [Suspect]
     Active Substance: CYCLOPHOSPHAMIDE
     Indication: ACUTE LYMPHOCYTIC LEUKAEMIA
     Dosage: 1790 MG ONCE A MONTH;
     Route: 042
     Dates: start: 20170719
  4. PEGASPARGASE [Suspect]
     Active Substance: PEGASPARGASE
     Indication: ACUTE LYMPHOCYTIC LEUKAEMIA
     Dosage: IU/M2; 44751U ON DAYS 15 AND 93
     Route: 042
     Dates: start: 20170506
  5. CYTARABINE. [Suspect]
     Active Substance: CYTARABINE
     Dosage: 137.25 MG, DAILY X 4 DAYS
     Route: 042
     Dates: start: 20170829
  6. METHOTREXATE. [Suspect]
     Active Substance: METHOTREXATE
     Indication: ACUTE LYMPHOCYTIC LEUKAEMIA
     Dosage: 15 MG, ON DAY 1,8, 15, 22
     Route: 037
     Dates: start: 20170510
  7. MERCAPTOPURINE. [Suspect]
     Active Substance: MERCAPTOPURINE
     Indication: ACUTE LYMPHOCYTIC LEUKAEMIA
     Dosage: 125 MG X2 DAYS A WEEK, 100 MG X5 DAYS A WEEK;
     Dates: start: 20170619, end: 20170726
  8. CYTARABINE. [Suspect]
     Active Substance: CYTARABINE
     Indication: ACUTE LYMPHOCYTIC LEUKAEMIA
     Dosage: 137.25 MG, DAILY X 4 DAYS
     Route: 042
     Dates: start: 20170505, end: 20170726
  9. INCB018424 [Suspect]
     Active Substance: RUXOLITINIB
     Indication: ACUTE LYMPHOCYTIC LEUKAEMIA
     Dosage: 180 MILLIGRAM DAILY;
     Route: 048
     Dates: start: 20170619, end: 20170726
  10. MERCAPTOPURINE. [Suspect]
     Active Substance: MERCAPTOPURINE
     Dosage: 125 MG X2 DAYS A WEEK, 100 MG X5 DAYS A WEEK;
     Dates: start: 20170829

REACTIONS (7)
  - Febrile neutropenia [Unknown]
  - Cellulitis [Recovering/Resolving]
  - Perirectal abscess [Unknown]
  - Encopresis [Unknown]
  - Bacterial infection [Recovering/Resolving]
  - Febrile neutropenia [Recovered/Resolved]
  - Sepsis [Recovered/Resolved]

NARRATIVE: CASE EVENT DATE: 20170724
